FAERS Safety Report 14089872 (Version 1)
Quarter: 2017Q4

REPORT INFORMATION
  Report Type: Spontaneous
  Country: US (occurrence: US)
  Receive Date: 20171014
  Receipt Date: 20171014
  Transmission Date: 20180321
  Serious: No
  Sender: FDA-Public Use
  Company Number: US-SA-2017SA172002

PATIENT
  Sex: Female

DRUGS (1)
  1. AUBAGIO [Suspect]
     Active Substance: TERIFLUNOMIDE
     Route: 048

REACTIONS (5)
  - Seasonal allergy [Unknown]
  - Nasal pruritus [Unknown]
  - Pruritus [Unknown]
  - Condition aggravated [Unknown]
  - Eye pruritus [Unknown]
